FAERS Safety Report 7231507-X (Version None)
Quarter: 2011Q1

REPORT INFORMATION
  Report Type: 
  Country: None (occurrence: None)
  Receive Date: 20110118
  Receipt Date: 20110111
  Transmission Date: 20110831
  Serious: Yes (Hospitalization)
  Sender: FDA-Public Use
  Company Number: FR-ABBOTT-11P-056-0696567-00

PATIENT
  Sex: Female

DRUGS (15)
  1. LEVOTHYROX [Concomitant]
     Indication: PRODUCT USED FOR UNKNOWN INDICATION
     Dosage: DAILY DOSE: 50MCG
  2. AUGMENTIN '125' [Concomitant]
     Indication: BRONCHOSPASM
  3. CARDENSIEL [Concomitant]
     Indication: PRODUCT USED FOR UNKNOWN INDICATION
     Dosage: DAILY DOSE: 1.25MG
     Route: 048
  4. CLAMOXYL [Suspect]
     Indication: RASH
  5. FENOFIBRATE [Concomitant]
     Indication: PRODUCT USED FOR UNKNOWN INDICATION
     Dosage: DAILY DOSE: 200MG
     Route: 048
     Dates: end: 20100615
  6. FLECAINE [Concomitant]
     Indication: PRODUCT USED FOR UNKNOWN INDICATION
     Dosage: DAILY DOSE: 200MG
     Route: 048
     Dates: end: 20100615
  7. ZECLAR [Suspect]
     Indication: COUGH
     Route: 048
     Dates: start: 20100609, end: 20100610
  8. ZECLAR [Suspect]
     Indication: RASH
  9. PULMICORT [Concomitant]
     Indication: BRONCHOSPASM
  10. COKENZEN [Concomitant]
     Indication: PRODUCT USED FOR UNKNOWN INDICATION
     Dosage: 1- 8MG/16MG DAILY
     Dates: end: 20100615
  11. PREVISCAN [Suspect]
     Indication: PROPHYLAXIS
     Dosage: 1/2 OF 20MG TABLET PER DAY
     Route: 048
     Dates: end: 20100610
  12. CLAMOXYL [Suspect]
     Indication: COUGH
     Route: 048
     Dates: start: 20100609, end: 20100610
  13. TRIFLUCAN [Concomitant]
     Indication: FUNGAL INFECTION
     Dosage: 1 DOSAGE FORMS DAILY
     Route: 048
     Dates: start: 20100601, end: 20100610
  14. PULMICORT [Concomitant]
     Indication: DYSPNOEA
     Route: 055
     Dates: start: 20100501, end: 20100601
  15. AUGMENTIN '125' [Concomitant]
     Indication: DYSPNOEA
     Route: 048
     Dates: start: 20100501, end: 20100601

REACTIONS (3)
  - PRURIGO [None]
  - INTERNATIONAL NORMALISED RATIO INCREASED [None]
  - OVERDOSE [None]
